FAERS Safety Report 11575778 (Version 1)
Quarter: 2015Q3

REPORT INFORMATION
  Report Type: Spontaneous
  Country: US (occurrence: None)
  Receive Date: 20150929
  Receipt Date: 20150929
  Transmission Date: 20151125
  Serious: Yes (Life-Threatening, Hospitalization)
  Sender: FDA-Public Use
  Company Number: None

PATIENT
  Age: 37 Year
  Sex: Female
  Weight: 81.65 kg

DRUGS (3)
  1. VIORELE [Suspect]
     Active Substance: DESOGESTREL\ETHINYL ESTRADIOL
     Indication: MENSTRUAL CYCLE MANAGEMENT
     Route: 048
     Dates: start: 20130801, end: 20150625
  2. WARFARIN [Concomitant]
     Active Substance: WARFARIN
  3. LIPITOR [Concomitant]
     Active Substance: ATORVASTATIN CALCIUM

REACTIONS (4)
  - Photophobia [None]
  - Headache [None]
  - Cerebral thrombosis [None]
  - Hemiparesis [None]

NARRATIVE: CASE EVENT DATE: 20150625
